FAERS Safety Report 13994026 (Version 1)
Quarter: 2017Q3

REPORT INFORMATION
  Report Type: Spontaneous
  Country: CH (occurrence: CH)
  Receive Date: 20170920
  Receipt Date: 20170920
  Transmission Date: 20171128
  Serious: Yes (Hospitalization, Other)
  Sender: FDA-Public Use
  Company Number: CH-PFIZER INC-2017398266

PATIENT
  Age: 41 Year
  Sex: Female

DRUGS (27)
  1. MYCOBUTIN [Interacting]
     Active Substance: RIFABUTIN
     Indication: MYCOBACTERIUM AVIUM COMPLEX INFECTION
     Dosage: 300 MG (7.538MG/KG), 1X PER 24 HOURS
     Route: 048
     Dates: start: 20170824
  2. ORFIRIL [Interacting]
     Active Substance: VALPROIC ACID
     Dosage: 500 MG, 2X/DAY
     Route: 048
     Dates: start: 201706, end: 201708
  3. MOXIFLOXACIN. [Suspect]
     Active Substance: MOXIFLOXACIN
     Indication: ATYPICAL MYCOBACTERIUM TEST POSITIVE
     Dosage: UNK
     Route: 048
     Dates: start: 20170729, end: 20170821
  4. TEMGESIC [Suspect]
     Active Substance: BUPRENORPHINE HYDROCHLORIDE
     Dosage: 0.1 MG, 3X/D (MAX.) AS NEEDED IF PAIN
     Route: 060
  5. RIFAMPICIN [Interacting]
     Active Substance: RIFAMPIN
     Indication: ATYPICAL MYCOBACTERIUM TEST POSITIVE
     Dosage: UNK
     Route: 048
     Dates: start: 20170729, end: 20170821
  6. DEXAMETHASONE. [Suspect]
     Active Substance: DEXAMETHASONE
     Dosage: 16 MG, 1X/DAY (MORNING)
     Route: 048
     Dates: start: 20170729, end: 20170821
  7. HALDOL [Suspect]
     Active Substance: HALOPERIDOL
     Dosage: 1 MG, UNK (TABLET)
     Route: 048
     Dates: start: 20170826, end: 20170826
  8. IRFEN [Concomitant]
     Active Substance: IBUPROFEN
     Dosage: 200 MG, 3X/D (MAX.) IN RESERVE
     Route: 048
  9. RIVOTRIL [Interacting]
     Active Substance: CLONAZEPAM
     Dosage: 1 MG, SINGLE
     Route: 048
     Dates: start: 20170826, end: 20170826
  10. RIVOTRIL [Interacting]
     Active Substance: CLONAZEPAM
     Dosage: 1 MG, 2X/DAY
     Route: 048
  11. TRIUMEQ [Concomitant]
     Active Substance: ABACAVIR SULFATE\DOLUTEGRAVIR SODIUM\LAMIVUDINE
     Indication: HIV CARRIER
     Dosage: UNK
     Dates: start: 201610, end: 201707
  12. NEXIUM [Concomitant]
     Active Substance: ESOMEPRAZOLE MAGNESIUM
     Dosage: 20 MG, 1X/DAY (MORNING)
     Route: 048
  13. ORFIRIL [Interacting]
     Active Substance: VALPROIC ACID
     Dosage: 1000 MG, 2X/DAY
     Dates: start: 20170828
  14. HALDOL [Suspect]
     Active Substance: HALOPERIDOL
     Dosage: 0.5 MG, 2X/D (MAX.) IN RESERVE
     Route: 048
  15. TEMGESIC [Suspect]
     Active Substance: BUPRENORPHINE HYDROCHLORIDE
     Indication: PAIN
     Dosage: 0.2 MG, 3X/DAY + 0.1MG BEFORE THE TOILET
     Route: 060
  16. AMIKACIN [Concomitant]
     Active Substance: AMIKACIN
     Indication: ATYPICAL MYCOBACTERIUM TEST POSITIVE
     Dosage: UNK
     Dates: start: 20170729, end: 20170821
  17. ISENTRESS [Concomitant]
     Active Substance: RALTEGRAVIR POTASSIUM
     Indication: HIV CARRIER
     Dosage: 400 MG, 1X/12H
     Route: 048
     Dates: start: 201708
  18. MOVICOL [Concomitant]
     Active Substance: POLYETHYLENE GLYCOL 3350\POTASSIUM CHLORIDE\SODIUM BICARBONATE\SODIUM CHLORIDE
     Dosage: 1 DF (BAG), 2X/DAY (MAX.) IN RESERVE
     Route: 048
  19. ORFIRIL [Interacting]
     Active Substance: VALPROIC ACID
     Dosage: 750 MG, 2X/DAY
     Dates: start: 201708, end: 20170828
  20. CLARITHROMYCIN. [Interacting]
     Active Substance: CLARITHROMYCIN
     Indication: MYCOBACTERIUM AVIUM COMPLEX INFECTION
     Dosage: 500 MG, 1X PER 12 HOURS
     Route: 048
     Dates: start: 20170821
  21. MYAMBUTOL [Concomitant]
     Active Substance: ETHAMBUTOL HYDROCHLORIDE
     Indication: MYCOBACTERIUM AVIUM COMPLEX INFECTION
     Dosage: UNK
     Dates: start: 20170821, end: 20170824
  22. MYAMBUTOL [Concomitant]
     Active Substance: ETHAMBUTOL HYDROCHLORIDE
     Dosage: 600 MG, 1X/24H
     Route: 048
  23. WELLVONE [Concomitant]
     Active Substance: ATOVAQUONE
     Indication: ANTIFUNGAL PROPHYLAXIS
     Dosage: 1500 MG, 1X/24H
     Route: 048
     Dates: start: 201707
  24. ZYVOXID [Suspect]
     Active Substance: LINEZOLID
     Indication: MYCOBACTERIUM AVIUM COMPLEX INFECTION
     Dosage: 600 MG, 1X PER 12 HOURS(30-MINUTES-INTRAVENOUS)
     Route: 041
     Dates: start: 20170824
  25. CLEXANE [Concomitant]
     Active Substance: ENOXAPARIN SODIUM
     Dosage: 20 MG, 1X/DAY, -6H POST OP
     Route: 058
  26. ISONIAZID. [Suspect]
     Active Substance: ISONIAZID
     Indication: ATYPICAL MYCOBACTERIUM TEST POSITIVE
     Dosage: UNK
     Dates: start: 20170729, end: 20170821
  27. KIVEXA [Concomitant]
     Active Substance: ABACAVIR SULFATE\LAMIVUDINE
     Dosage: 1 DF, 1X/24H
     Route: 048
     Dates: start: 201708

REACTIONS (2)
  - Drug interaction [Recovered/Resolved]
  - Generalised tonic-clonic seizure [Recovered/Resolved]

NARRATIVE: CASE EVENT DATE: 20170826
